FAERS Safety Report 9982010 (Version 1)
Quarter: 2014Q1

REPORT INFORMATION
  Report Type: Report from Study
  Country: US (occurrence: US)
  Receive Date: 20140307
  Receipt Date: 20140307
  Transmission Date: 20141002
  Serious: No
  Sender: FDA-Public Use
  Company Number: US-ABBVIE-13P-163-1184070-00

PATIENT
  Age: 52 Year
  Sex: Female

DRUGS (9)
  1. HUMIRA [Suspect]
     Indication: RHEUMATOID ARTHRITIS
     Dates: start: 20131127
  2. TIROSINT [Concomitant]
     Indication: HYPOTHYROIDISM
  3. ALLOPURINOL [Concomitant]
     Indication: SARCOIDOSIS
  4. FOLIC ACID [Concomitant]
     Indication: PRODUCT USED FOR UNKNOWN INDICATION
  5. METHOTREXATE [Concomitant]
     Indication: RHEUMATOID ARTHRITIS
     Dosage: EVERY SUNDAY
  6. TRIAM CO [Concomitant]
     Indication: HYPERTENSION
     Dosage: 37.5/25
  7. LEXAPRO [Concomitant]
     Indication: DEPRESSION
  8. ZYRTEC [Concomitant]
     Indication: HYPERSENSITIVITY
  9. WELCHOL [Concomitant]
     Indication: BLOOD CHOLESTEROL INCREASED

REACTIONS (2)
  - Epistaxis [Recovered/Resolved]
  - Sinusitis [Recovered/Resolved]
